FAERS Safety Report 20500345 (Version 1)
Quarter: 2022Q1

REPORT INFORMATION
  Report Type: Spontaneous
  Country: US (occurrence: None)
  Receive Date: 20220219
  Receipt Date: 20220219
  Transmission Date: 20220423
  Serious: Yes (Hospitalization)
  Sender: FDA-Public Use
  Company Number: None

PATIENT
  Sex: Female
  Weight: 69.4 kg

DRUGS (6)
  1. DEXAMETHASONE [Suspect]
     Active Substance: DEXAMETHASONE
     Indication: Product used for unknown indication
  2. ONCASPAR [Suspect]
     Active Substance: PEGASPARGASE
  3. CYTARABINE [Suspect]
     Active Substance: CYTARABINE
  4. DAUNORUBICIN [Suspect]
     Active Substance: DAUNORUBICIN
  5. METHOTREXATE [Suspect]
     Active Substance: METHOTREXATE
  6. VINCRISTINE SULFATE [Suspect]
     Active Substance: VINCRISTINE SULFATE

REACTIONS (2)
  - Fall [None]
  - Myopathy [None]

NARRATIVE: CASE EVENT DATE: 20220215
